FAERS Safety Report 9146949 (Version 1)
Quarter: 2013Q1

REPORT INFORMATION
  Report Type: Spontaneous
  Country: US (occurrence: US)
  Receive Date: 20130307
  Receipt Date: 20130307
  Transmission Date: 20140127
  Serious: No
  Sender: FDA-Public Use
  Company Number: US-009507513-1303USA003053

PATIENT
  Age: 30 Year
  Sex: Female

DRUGS (2)
  1. AFRIN [Suspect]
     Indication: RESPIRATORY TRACT CONGESTION
     Dosage: 2 DF, UNKNOWN
     Route: 045
  2. AFRIN [Suspect]
     Dosage: 1 DF, UNKNOWN
     Route: 045

REACTIONS (2)
  - Drug ineffective [Unknown]
  - Underdose [Unknown]
